FAERS Safety Report 20839324 (Version 2)
Quarter: 2022Q2

REPORT INFORMATION
  Report Type: Spontaneous
  Country: US (occurrence: US)
  Receive Date: 20220517
  Receipt Date: 20220530
  Transmission Date: 20220720
  Serious: No
  Sender: FDA-Public Use
  Company Number: US-BIOGEN-2020BI00911796

PATIENT
  Sex: Female

DRUGS (1)
  1. TECFIDERA [Suspect]
     Active Substance: DIMETHYL FUMARATE
     Indication: Multiple sclerosis
     Route: 065
     Dates: start: 20141013, end: 20220512

REACTIONS (8)
  - Gastric disorder [Unknown]
  - Gastrointestinal disorder [Unknown]
  - Drug intolerance [Recovered/Resolved]
  - Gastrointestinal mucosal disorder [Recovered/Resolved]
  - Flatulence [Recovered/Resolved]
  - Abdominal discomfort [Recovered/Resolved]
  - Feeling hot [Unknown]
  - Diarrhoea [Recovered/Resolved]
